FAERS Safety Report 9237191 (Version 2)
Quarter: 2013Q2

REPORT INFORMATION
  Report Type: Spontaneous
  Country: US (occurrence: US)
  Receive Date: 20130417
  Receipt Date: 20130524
  Transmission Date: 20140414
  Serious: No
  Sender: FDA-Public Use
  Company Number: US-PFIZER INC-2013118356

PATIENT
  Age: 43 Year
  Sex: Male
  Weight: 60.32 kg

DRUGS (6)
  1. LYRICA [Suspect]
     Indication: PAIN
     Dosage: 100 MG, 2X/DAY
     Route: 048
  2. LYRICA [Suspect]
     Indication: NEUROPATHY PERIPHERAL
     Dosage: 100 MG, 3X/DAY (TID)
     Route: 048
     Dates: start: 20120809
  3. CARBAMAZEPINE [Concomitant]
     Dosage: 100 MG, 1X/DAY
     Route: 048
  4. DIPHENHYDRAND [Concomitant]
     Dosage: 25 MG, 1X/DAY
  5. MELOXICAM [Concomitant]
     Dosage: 15 MG, 1X/DAY
     Route: 048
  6. PHENOBARBITAL [Concomitant]
     Dosage: 60 MG, 1X/DAY
     Route: 048

REACTIONS (1)
  - Drug ineffective [Unknown]
